FAERS Safety Report 12938734 (Version 2)
Quarter: 2017Q2

REPORT INFORMATION
  Report Type: Report from Study
  Country: CZ (occurrence: CZ)
  Receive Date: 20161115
  Receipt Date: 20170608
  Transmission Date: 20170830
  Serious: Yes (Death, Other)
  Sender: FDA-Public Use
  Company Number: PHHY2016CZ140931

PATIENT
  Age: 56 Year
  Sex: Male

DRUGS (4)
  1. SANDOSTATIN [Suspect]
     Active Substance: OCTREOTIDE ACETATE
     Dosage: 30 OT,  (EVERY 14TH DAY)
     Route: 065
     Dates: start: 20120208
  2. SANDOSTATIN [Suspect]
     Active Substance: OCTREOTIDE ACETATE
     Dosage: 30 OT,  (EVERY 21TH DAY)
     Route: 065
     Dates: start: 20111005, end: 20120208
  3. SANDOSTATIN [Suspect]
     Active Substance: OCTREOTIDE ACETATE
     Dosage: 30 OT, QMO  (EVERY 28TH DAY)
     Route: 065
     Dates: start: 20110228, end: 20111005
  4. SANDOSTATIN [Suspect]
     Active Substance: OCTREOTIDE ACETATE
     Indication: NEUROENDOCRINE TUMOUR
     Dosage: 20 OT, QMO (EVERY 28TH DAY)
     Route: 065
     Dates: start: 20100201

REACTIONS (10)
  - Inappropriate schedule of drug administration [Unknown]
  - Small intestine carcinoma [Fatal]
  - Vascular compression [Unknown]
  - Hepatic enzyme increased [Unknown]
  - Carcinoid heart disease [Unknown]
  - Malnutrition [Unknown]
  - Hepatic failure [Unknown]
  - Hypophagia [Unknown]
  - Lymphoedema [Unknown]
  - Malignant neoplasm progression [Unknown]

NARRATIVE: CASE EVENT DATE: 20110228
